FAERS Safety Report 12994622 (Version 2)
Quarter: 2016Q4

REPORT INFORMATION
  Report Type: Spontaneous
  Country: JP (occurrence: JP)
  Receive Date: 20161202
  Receipt Date: 20161209
  Transmission Date: 20170207
  Serious: Yes (Other)
  Sender: FDA-Public Use
  Company Number: PHJP2016JP034885

PATIENT
  Age: 75 Year
  Sex: Male

DRUGS (1)
  1. ZOMETA [Suspect]
     Active Substance: ZOLEDRONIC ACID
     Indication: PLASMA CELL MYELOMA
     Dosage: UNK
     Route: 041
     Dates: start: 201403, end: 201511

REACTIONS (5)
  - Osteonecrosis of jaw [Unknown]
  - Loose tooth [Unknown]
  - Abscess oral [Unknown]
  - Breath odour [Unknown]
  - Tooth abscess [Unknown]
